FAERS Safety Report 18850225 (Version 1)
Quarter: 2021Q1

REPORT INFORMATION
  Report Type: Spontaneous
  Country: JP (occurrence: JP)
  Receive Date: 20210205
  Receipt Date: 20210205
  Transmission Date: 20210420
  Serious: Yes (Other)
  Sender: FDA-Public Use
  Company Number: JP-TAKEDA-2021TJP003115

PATIENT
  Age: 2 Year
  Sex: Female

DRUGS (1)
  1. VPRIV [Suspect]
     Active Substance: VELAGLUCERASE ALFA
     Indication: PRODUCT USED FOR UNKNOWN INDICATION
     Route: 065

REACTIONS (8)
  - Dyskinesia [Unknown]
  - Femur fracture [Unknown]
  - Lagophthalmos [Unknown]
  - Tremor [Unknown]
  - Neurological symptom [Unknown]
  - Dry skin [Unknown]
  - Stiff person syndrome [Unknown]
  - Somnolence [Unknown]
